FAERS Safety Report 24846507 (Version 1)
Quarter: 2025Q1

REPORT INFORMATION
  Report Type: Spontaneous
  Country: US (occurrence: US)
  Receive Date: 20250115
  Receipt Date: 20250115
  Transmission Date: 20250408
  Serious: No
  Sender: FENNEC PHARMACEUTICALS
  Company Number: US-FENNEC PHARMACEUTICALS, INC.-2024FEN00079

PATIENT
  Age: 47 Year
  Sex: Female

DRUGS (1)
  1. PEDMARK [Suspect]
     Active Substance: SODIUM THIOSULFATE
     Dosage: 37.5 G, 1X/WEEK
     Route: 042

REACTIONS (2)
  - Nausea [Unknown]
  - Vomiting [Unknown]

NARRATIVE: CASE EVENT DATE: 20241201
